FAERS Safety Report 7332872-5 (Version None)
Quarter: 2011Q1

REPORT INFORMATION
  Report Type: 
  Country: None (occurrence: None)
  Receive Date: 20110304
  Receipt Date: 20110301
  Transmission Date: 20110831
  Serious: Yes (Other)
  Sender: FDA-Public Use
  Company Number: CA-PFIZER INC-2009155062

PATIENT
  Age: 56 Year
  Sex: Female

DRUGS (6)
  1. TENORMIN [Concomitant]
     Dosage: UNK
  2. ASA [Concomitant]
     Dosage: UNK
  3. METFORMIN HYDROCHLORIDE [Suspect]
     Indication: GLUCOSE TOLERANCE IMPAIRED
  4. LIPITOR [Suspect]
     Indication: PROPHYLAXIS
  5. ALTACE [Concomitant]
     Dosage: UNK
  6. LIPITOR [Suspect]
     Indication: BLOOD CHOLESTEROL INCREASED
     Dosage: 10 MG, 1X/DAY
     Route: 048
     Dates: end: 20050101

REACTIONS (6)
  - EMOTIONAL DISORDER [None]
  - INSOMNIA [None]
  - ABNORMAL BEHAVIOUR [None]
  - BLOOD CHOLESTEROL INCREASED [None]
  - POLYURIA [None]
  - PHYSICAL ASSAULT [None]
